FAERS Safety Report 9744668 (Version 1)
Quarter: 2013Q4

REPORT INFORMATION
  Report Type: Report from Study
  Country: US (occurrence: US)
  Receive Date: 20131210
  Receipt Date: 20131210
  Transmission Date: 20140711
  Serious: Yes (Other)
  Sender: FDA-Public Use
  Company Number: US-ROCHE-1315391

PATIENT
  Age: 57 Year
  Sex: Female

DRUGS (5)
  1. HERCEPTIN [Suspect]
     Indication: BREAST CANCER METASTATIC
     Dosage: 1L
     Route: 065
  2. PERJETA [Suspect]
     Indication: BREAST CANCER METASTATIC
     Dosage: 1L
     Route: 065
  3. TAXOTERE [Concomitant]
     Dosage: 1L
     Route: 065
  4. ABRAXANE [Concomitant]
     Dosage: 2L
     Route: 065
  5. HALAVEN [Concomitant]
     Dosage: 3L
     Route: 065

REACTIONS (1)
  - Cardiotoxicity [Unknown]
